FAERS Safety Report 5025536-4 (Version None)
Quarter: 2006Q2

REPORT INFORMATION
  Report Type: 
  Country: None (occurrence: None)
  Receive Date: 20060607
  Receipt Date: 20060522
  Transmission Date: 20061013
  Serious: Yes (Life-Threatening)
  Sender: FDA-Public Use
  Company Number: ES200605005353

PATIENT
  Age: 75 Year
  Sex: Female

DRUGS (4)
  1. ZYPREXA [Suspect]
     Indication: SCHIZOPHRENIA
     Dosage: 5 MG, DAILY (1/D); ORAL
     Route: 048
     Dates: start: 20040101
  2. SEROQUEL /UNK/ (QUETIAPINE FUMARATE) [Concomitant]
  3. ADALAT [Concomitant]
  4. TENORMIN [Concomitant]

REACTIONS (3)
  - CAROTID ARTERY STENOSIS [None]
  - CEREBRAL ARTERY THROMBOSIS [None]
  - ISCHAEMIC STROKE [None]
